FAERS Safety Report 10285849 (Version 2)
Quarter: 2014Q3

REPORT INFORMATION
  Report Type: Spontaneous
  Country: JP (occurrence: None)
  Receive Date: 20140703
  Receipt Date: 20140807
  Transmission Date: 20150326
  Serious: Yes (Other)
  Sender: FDA-Public Use
  Company Number: 2014-19868

PATIENT
  Age: 70 Year
  Sex: Female

DRUGS (1)
  1. EYLEA [Suspect]
     Active Substance: AFLIBERCEPT
     Indication: AGE-RELATED MACULAR DEGENERATION
     Route: 031
     Dates: start: 20140617

REACTIONS (5)
  - Intraocular pressure increased [None]
  - Abnormal sensation in eye [None]
  - Retinal haemorrhage [None]
  - Macular oedema [None]
  - Vitreous haemorrhage [None]

NARRATIVE: CASE EVENT DATE: 20140618
